FAERS Safety Report 4563247-X (Version None)
Quarter: 2005Q1

REPORT INFORMATION
  Report Type: 
  Country: None (occurrence: None)
  Receive Date: 20050128
  Receipt Date: 20050117
  Transmission Date: 20050727
  Serious: Yes (Hospitalization)
  Sender: FDA-Public Use
  Company Number: US-ABBOTT-05P-163-0286905-00

PATIENT
  Weight: 2.27 kg

DRUGS (2)
  1. HUMIRA [Suspect]
     Indication: DRUG EXPOSURE DURING PREGNANCY
  2. SERTRALINE HYDROCHLORIDE [Suspect]
     Indication: DRUG EXPOSURE DURING PREGNANCY

REACTIONS (5)
  - APNOEA [None]
  - BLOOD GLUCOSE DECREASED [None]
  - CONVULSION [None]
  - HYDROCEPHALUS [None]
  - SUBDURAL HAEMATOMA [None]
